FAERS Safety Report 7259548-7 (Version None)
Quarter: 2011Q1

REPORT INFORMATION
  Report Type: 
  Country: None (occurrence: None)
  Receive Date: 20110130
  Receipt Date: 20100915
  Transmission Date: 20110831
  Serious: No
  Sender: FDA-Public Use
  Company Number: US-ABBOTT-10P-163-0670942-00

PATIENT
  Age: 57 Year
  Sex: Female

DRUGS (5)
  1. ZOLOFT [Concomitant]
     Indication: PRODUCT USED FOR UNKNOWN INDICATION
  2. VITAMIN D [Concomitant]
     Indication: PRODUCT USED FOR UNKNOWN INDICATION
  3. HUMIRA [Suspect]
     Indication: PSORIATIC ARTHROPATHY
     Dates: start: 20100101
  4. EMPLIDENE [Concomitant]
     Indication: PRODUCT USED FOR UNKNOWN INDICATION
  5. UNKNOWN BLOOD PRESSURE MEDICATION [Concomitant]
     Indication: PRODUCT USED FOR UNKNOWN INDICATION

REACTIONS (4)
  - PRURITUS [None]
  - PSORIASIS [None]
  - RASH PAPULAR [None]
  - RASH PRURITIC [None]
